FAERS Safety Report 8319448-8 (Version None)
Quarter: 2012Q2

REPORT INFORMATION
  Report Type: 
  Country: None (occurrence: None)
  Receive Date: 20120427
  Receipt Date: 20120419
  Transmission Date: 20120825
  Serious: Yes (Death, Hospitalization)
  Sender: FDA-Public Use
  Company Number: US-JNJFOC-20050902261

PATIENT
  Age: 15 Year
  Sex: Male

DRUGS (4)
  1. BUPRENORPHINE [Suspect]
     Indication: SUICIDE ATTEMPT
     Route: 048
  2. ACETAMINOPHEN [Suspect]
     Indication: SUICIDE ATTEMPT
     Route: 048
  3. ACETAMINOPHEN [Suspect]
     Route: 048
  4. CODEINE/GUAIFENESIN [Suspect]
     Indication: SUICIDE ATTEMPT
     Route: 048

REACTIONS (7)
  - HEPATIC FAILURE [None]
  - ENCEPHALOPATHY [None]
  - HEPATIC NECROSIS [None]
  - BRAIN OEDEMA [None]
  - COMPLETED SUICIDE [None]
  - MULTIPLE DRUG OVERDOSE INTENTIONAL [None]
  - BRAIN DEATH [None]
